FAERS Safety Report 24105855 (Version 1)
Quarter: 2024Q3

REPORT INFORMATION
  Report Type: Spontaneous
  Country: CA (occurrence: CA)
  Receive Date: 20240717
  Receipt Date: 20240717
  Transmission Date: 20241016
  Serious: Yes (Other)
  Sender: OTSUKA
  Company Number: CA-OTSUKA-2024_019671

PATIENT
  Sex: Male

DRUGS (2)
  1. ABILIFY MAINTENA [Suspect]
     Active Substance: ARIPIPRAZOLE
     Indication: Schizophrenia
     Dosage: 1 EVERY 28 DAYS
     Route: 065
  2. PALIPERIDONE PALMITATE [Suspect]
     Active Substance: PALIPERIDONE PALMITATE
     Indication: Schizophrenia
     Dosage: 525.0 MILLIGRAM 1 EVERY 64 DAYS
     Route: 030

REACTIONS (20)
  - Glaucoma [Unknown]
  - Heart rate abnormal [Unknown]
  - Heart rate irregular [Unknown]
  - Hypokinesia [Unknown]
  - Dyspnoea [Unknown]
  - Muscle rigidity [Unknown]
  - Pain [Unknown]
  - Pain in extremity [Unknown]
  - Abdominal pain upper [Unknown]
  - Hallucinations, mixed [Unknown]
  - Asthenia [Unknown]
  - Syncope [Unknown]
  - Hypertension [Unknown]
  - Hyperglycaemia [Unknown]
  - Vision blurred [Unknown]
  - Decreased appetite [Unknown]
  - Weight increased [Unknown]
  - Headache [Unknown]
  - Dizziness [Unknown]
  - Off label use [Unknown]
